FAERS Safety Report 8011702-2 (Version None)
Quarter: 2011Q4

REPORT INFORMATION
  Report Type: 
  Country: None (occurrence: None)
  Receive Date: 20111228
  Receipt Date: 20111223
  Transmission Date: 20120403
  Serious: Yes (Other)
  Sender: FDA-Public Use
  Company Number: PHEH2011US012437

PATIENT
  Sex: Male
  Weight: 130 kg

DRUGS (4)
  1. DIGOXIN [Concomitant]
     Dosage: 125 MG, QD
     Route: 048
  2. NITROGLYCERIN [Concomitant]
     Dosage: 4 MG, UNK
  3. SYNTHROID [Concomitant]
     Dosage: 175 UG, QD
     Route: 048
  4. TASIGNA [Suspect]
     Indication: CHRONIC MYELOID LEUKAEMIA
     Dosage: 150 MG, BID
     Route: 048
     Dates: start: 20110328

REACTIONS (2)
  - FATIGUE [None]
  - DECREASED APPETITE [None]
